FAERS Safety Report 23638288 (Version 1)
Quarter: 2024Q1

REPORT INFORMATION
  Report Type: Report from Study
  Country: GB (occurrence: GB)
  Receive Date: 20240315
  Receipt Date: 20240315
  Transmission Date: 20240409
  Serious: Yes (Other)
  Sender: FDA-Public Use
  Company Number: GB-SAMSUNG BIOEPIS-SB-2024-05197

PATIENT
  Sex: Female

DRUGS (1)
  1. ETANERCEPT [Suspect]
     Active Substance: ETANERCEPT
     Indication: Rheumatoid arthritis
     Route: 058
     Dates: start: 20240130

REACTIONS (6)
  - Shock [Unknown]
  - Chest discomfort [Recovering/Resolving]
  - Fatigue [Unknown]
  - Livedo reticularis [Unknown]
  - Rash pruritic [Unknown]
  - Headache [Unknown]
